FAERS Safety Report 13107151 (Version 2)
Quarter: 2017Q3

REPORT INFORMATION
  Report Type: Spontaneous
  Country: US (occurrence: US)
  Receive Date: 20170112
  Receipt Date: 20170714
  Transmission Date: 20171127
  Serious: No
  Sender: FDA-Public Use
  Company Number: US-009507513-1701USA003275

PATIENT
  Age: 65 Year
  Sex: Female

DRUGS (6)
  1. DONEPEZIL. [Concomitant]
     Active Substance: DONEPEZIL
     Dosage: 10 MG, QD
  2. SINEMET [Suspect]
     Active Substance: CARBIDOPA\LEVODOPA
     Dosage: INCREASED DOSE
     Route: 048
  3. SINEMET [Suspect]
     Active Substance: CARBIDOPA\LEVODOPA
     Indication: PARKINSON^S DISEASE
     Dosage: UNK UNK, 5 TIMES PER DAY
     Route: 048
  4. LITHIUM. [Concomitant]
     Active Substance: LITHIUM
     Dosage: 600 MG, BID
  5. LITHIUM. [Concomitant]
     Active Substance: LITHIUM
     Dosage: 300 MG, BID
  6. MEMANTINE. [Concomitant]
     Active Substance: MEMANTINE
     Dosage: 10 MG, BID

REACTIONS (2)
  - Hallucination, visual [Recovering/Resolving]
  - Confusional state [Recovered/Resolved]
